FAERS Safety Report 4596857-4 (Version None)
Quarter: 2005Q1

REPORT INFORMATION
  Report Type: 
  Country: None (occurrence: None)
  Receive Date: 20050225
  Receipt Date: 20050210
  Transmission Date: 20050727
  Serious: Yes (Life-Threatening)
  Sender: FDA-Public Use
  Company Number: SU-2005-003125

PATIENT
  Sex: Male

DRUGS (2)
  1. BENICAR [Suspect]
     Indication: RHEUMATOID ARTHRITIS
     Dosage: MG UNK; PO
     Route: 048
  2. CIPRO [Suspect]
     Indication: RHEUMATOID ARTHRITIS
     Dosage: 1.5 G DAILY 065

REACTIONS (12)
  - ADRENOCORTICAL INSUFFICIENCY ACUTE [None]
  - ADRENOCORTICAL INSUFFICIENCY CHRONIC [None]
  - BLOOD PRESSURE ABNORMAL [None]
  - CARDIAC DISORDER [None]
  - DRUG INTERACTION [None]
  - ELECTROLYTE IMBALANCE [None]
  - EYE DISORDER [None]
  - JARISCH-HERXHEIMER REACTION [None]
  - OFF LABEL USE [None]
  - PROSTATIC DISORDER [None]
  - SELF-MEDICATION [None]
  - STRESS [None]
